FAERS Safety Report 23028958 (Version 1)
Quarter: 2023Q4

REPORT INFORMATION
  Report Type: Spontaneous
  Country: FR (occurrence: FR)
  Receive Date: 20231004
  Receipt Date: 20231004
  Transmission Date: 20240109
  Serious: Yes (Other)
  Sender: FDA-Public Use
  Company Number: FR-OTSUKA-2023_025645

PATIENT
  Age: 25 Year

DRUGS (3)
  1. BUSULFAN [Suspect]
     Active Substance: BUSULFAN
     Indication: Allogenic stem cell transplantation
     Dosage: 8 MG/KG
     Route: 065
  2. BUSULFAN [Suspect]
     Active Substance: BUSULFAN
     Indication: Bone marrow conditioning regimen
  3. BUSULFAN [Suspect]
     Active Substance: BUSULFAN
     Indication: Combined immunodeficiency

REACTIONS (5)
  - Growth retardation [Unknown]
  - Hepatitis [Not Recovered/Not Resolved]
  - Viral infection [Unknown]
  - Granuloma [Unknown]
  - Weight gain poor [Unknown]
